FAERS Safety Report 20913930 (Version 2)
Quarter: 2022Q2

REPORT INFORMATION
  Report Type: Other
  Country: US (occurrence: None)
  Receive Date: 20220604
  Receipt Date: 20220613
  Transmission Date: 20220721
  Serious: Yes (Other)
  Sender: FDA-Public Use
  Company Number: US-ROCHE-3106988

PATIENT
  Sex: Female
  Weight: 142.56 kg

DRUGS (9)
  1. OCREVUS [Suspect]
     Active Substance: OCRELIZUMAB
     Indication: Multiple sclerosis
     Route: 042
     Dates: start: 20200707
  2. FLUCONAZOLE [Concomitant]
     Active Substance: FLUCONAZOLE
     Route: 048
  3. LANSOPRAZOLE [Concomitant]
     Active Substance: LANSOPRAZOLE
     Route: 048
  4. LEVOTHYROXINE [Concomitant]
     Active Substance: LEVOTHYROXINE
     Route: 048
  5. LOSARTAN [Concomitant]
     Active Substance: LOSARTAN
  6. TIMOLOL MALEATE [Concomitant]
     Active Substance: TIMOLOL MALEATE
  7. LATANOPROST [Concomitant]
     Active Substance: LATANOPROST
  8. TRIAMTERENE [Concomitant]
     Active Substance: TRIAMTERENE
  9. ERGOCALCIFEROL [Concomitant]
     Active Substance: ERGOCALCIFEROL

REACTIONS (4)
  - Fatigue [Unknown]
  - Poor quality sleep [Unknown]
  - Multiple sclerosis [Unknown]
  - Weight abnormal [Unknown]
